FAERS Safety Report 23566432 (Version 1)
Quarter: 2024Q1

REPORT INFORMATION
  Report Type: Spontaneous
  Country: US (occurrence: US)
  Receive Date: 20240226
  Receipt Date: 20240226
  Transmission Date: 20240409
  Serious: No
  Sender: FDA-Public Use
  Company Number: US-009507513-2402USA007597

PATIENT
  Age: 32 Year
  Sex: Female

DRUGS (2)
  1. KEYTRUDA [Suspect]
     Active Substance: PEMBROLIZUMAB
     Indication: Hepatic cancer recurrent
     Dosage: 200 MILLIGRAM, Q3W. OVER THE COURSE OF 6 MONTHS
  2. FLUOROURACIL\LEUCOVORIN CALCIUM\OXALIPLATIN [Suspect]
     Active Substance: FLUOROURACIL\LEUCOVORIN CALCIUM\OXALIPLATIN
     Indication: Hepatic cancer recurrent
     Dosage: UNK, EVERY 2 WEEKS

REACTIONS (2)
  - Adverse drug reaction [Unknown]
  - Off label use [Unknown]
